FAERS Safety Report 8964631 (Version 2)
Quarter: 2013Q1

REPORT INFORMATION
  Report Type: Spontaneous
  Country: IT (occurrence: IT)
  Receive Date: 20121214
  Receipt Date: 20130226
  Transmission Date: 20140127
  Serious: Yes (Hospitalization)
  Sender: FDA-Public Use
  Company Number: IT-BRISTOL-MYERS SQUIBB COMPANY-17178021

PATIENT
  Age: 47 Year
  Sex: Male

DRUGS (1)
  1. COAPROVEL TABS [Suspect]
     Indication: HYPERTENSION
     Route: 048
     Dates: start: 20080101, end: 20121121

REACTIONS (5)
  - Renal failure acute [Recovered/Resolved]
  - Hypokalaemia [Recovered/Resolved]
  - Hyponatraemia [Recovered/Resolved]
  - Dystonia [Recovered/Resolved]
  - Anaemia [Recovered/Resolved]
